FAERS Safety Report 14704062 (Version 1)
Quarter: 2018Q2

REPORT INFORMATION
  Report Type: Spontaneous
  Country: US (occurrence: US)
  Receive Date: 20180402
  Receipt Date: 20180402
  Transmission Date: 20180711
  Serious: Yes (Hospitalization, Other)
  Sender: FDA-Public Use
  Company Number: US-BAYER-2018-059699

PATIENT
  Age: 23 Year
  Sex: Female

DRUGS (4)
  1. ACETYLSALICYLIC ACID({=100 MG) [Suspect]
     Active Substance: ASPIRIN
  2. CAFFEINE. [Suspect]
     Active Substance: CAFFEINE
  3. PARACETAMOL [Suspect]
     Active Substance: ACETAMINOPHEN
  4. BENADRYL [Suspect]
     Active Substance: DIPHENHYDRAMINE HYDROCHLORIDE

REACTIONS (3)
  - Suicide attempt [None]
  - Abortion spontaneous [None]
  - Maternal exposure during pregnancy [None]
